FAERS Safety Report 21260198 (Version 3)
Quarter: 2022Q4

REPORT INFORMATION
  Report Type: Spontaneous
  Country: US (occurrence: US)
  Receive Date: 20220826
  Receipt Date: 20221028
  Transmission Date: 20230113
  Serious: No
  Sender: FDA-Public Use
  Company Number: US-PFIZER INC-202200985245

PATIENT
  Age: 76 Year
  Sex: Female
  Weight: 65.32 kg

DRUGS (3)
  1. GENOTROPIN [Suspect]
     Active Substance: SOMATROPIN
     Indication: Hypopituitarism
     Dosage: 3 MG A DAY ON HER STOMACH (SHE DOES 2MG ONE DAY AND 4MG THE NEXT DAY)
     Route: 058
     Dates: start: 2019
  2. GENOTROPIN [Suspect]
     Active Substance: SOMATROPIN
     Dosage: 2 MG, ALTERNATE DAY
     Dates: start: 202003
  3. GENOTROPIN [Suspect]
     Active Substance: SOMATROPIN
     Dosage: 4 MG, ALTERNATE DAY
     Dates: start: 202003

REACTIONS (4)
  - Off label use [Unknown]
  - Incorrect dose administered [Not Recovered/Not Resolved]
  - Expired device used [Unknown]
  - Drug dose omission by device [Unknown]

NARRATIVE: CASE EVENT DATE: 20200101
